FAERS Safety Report 21529088 (Version 1)
Quarter: 2022Q4

REPORT INFORMATION
  Report Type: Spontaneous
  Country: US (occurrence: US)
  Receive Date: 20221031
  Receipt Date: 20221031
  Transmission Date: 20230113
  Serious: Yes (Other)
  Sender: FDA-Public Use
  Company Number: US-SA-SAC20221028001129

PATIENT
  Age: 32 Year

DRUGS (1)
  1. ZANTAC [Suspect]
     Active Substance: RANITIDINE HYDROCHLORIDE
     Dosage: 75 MG FREQUENCY : OTHER
     Route: 065
     Dates: start: 201101, end: 201812

REACTIONS (1)
  - Gastrointestinal carcinoma [Unknown]
